FAERS Safety Report 17282599 (Version 1)
Quarter: 2020Q1

REPORT INFORMATION
  Report Type: Other
  Country: JP (occurrence: JP)
  Receive Date: 20200117
  Receipt Date: 20200117
  Transmission Date: 20200409
  Serious: Yes (Death)
  Sender: FDA-Public Use
  Company Number: JP-APTAPHARMA INC.-2079118

PATIENT
  Age: 50 Year
  Sex: Male
  Weight: 81.7 kg

DRUGS (2)
  1. IBUPROFEN ORAL [Suspect]
     Active Substance: IBUPROFEN
     Indication: PRODUCT USED FOR UNKNOWN INDICATION
     Route: 065
  2. LOXOPROFEN SODIUM [Suspect]
     Active Substance: LOXOPROFEN SODIUM
     Route: 065

REACTIONS (5)
  - Kounis syndrome [Fatal]
  - Pulmonary congestion [Fatal]
  - Spleen congestion [Fatal]
  - Oedema [Fatal]
  - Asthma [Fatal]
